FAERS Safety Report 4740743-3 (Version None)
Quarter: 2005Q3

REPORT INFORMATION
  Report Type: 
  Country: None (occurrence: None)
  Receive Date: 20050810
  Receipt Date: 20050729
  Transmission Date: 20060218
  Serious: Yes (Other)
  Sender: FDA-Public Use
  Company Number: CA-JNJFOC-20050500863

PATIENT
  Age: 81 Year
  Sex: Female

DRUGS (1)
  1. REMINYL [Suspect]
     Dosage: DOSE UNSPECIFIED

REACTIONS (1)
  - HEPATITIS [None]
